FAERS Safety Report 9919368 (Version 3)
Quarter: 2014Q2

REPORT INFORMATION
  Report Type: Spontaneous
  Country: FR (occurrence: FR)
  Receive Date: 20140224
  Receipt Date: 20140522
  Transmission Date: 20141212
  Serious: Yes (Death)
  Sender: FDA-Public Use
  Company Number: FR-ASTRAZENECA-2014SE08010

PATIENT
  Age: 23901 Day
  Sex: Female

DRUGS (4)
  1. BRILIQUE [Suspect]
     Indication: ACUTE CORONARY SYNDROME
     Route: 048
     Dates: start: 20140128
  2. KARDEGIC [Suspect]
     Indication: ACUTE CORONARY SYNDROME
     Route: 048
     Dates: start: 20140128
  3. HEPARIN [Suspect]
     Indication: ACUTE CORONARY SYNDROME
     Route: 040
     Dates: start: 20140130
  4. LOVENOX [Suspect]
     Indication: ACUTE CORONARY SYNDROME
     Route: 058
     Dates: start: 20140130

REACTIONS (3)
  - Subdural haematoma [Fatal]
  - Intracranial pressure increased [Fatal]
  - Coma [Fatal]
